FAERS Safety Report 8901192 (Version 1)
Quarter: 2012Q4

REPORT INFORMATION
  Report Type: 
  Country: US (occurrence: US)
  Receive Date: 20121109
  Receipt Date: 20121109
  Transmission Date: 20130627
  Serious: No
  Sender: FDA-Public Use
  Company Number: US-PFIZER INC-2012279817

PATIENT
  Age: 63 Year
  Sex: Female
  Weight: 53.06 kg

DRUGS (1)
  1. LYRICA [Suspect]
     Indication: BACK PAIN
     Dosage: 50 mg,daily
     Dates: start: 20120825, end: 20120828

REACTIONS (1)
  - Urinary incontinence [Recovered/Resolved]
